FAERS Safety Report 6907860-0 (Version None)
Quarter: 2010Q3

REPORT INFORMATION
  Report Type: 
  Country: None (occurrence: None)
  Receive Date: 20100712
  Receipt Date: 20100512
  Transmission Date: 20110219
  Serious: No
  Sender: FDA-Public Use
  Company Number: US-000354

PATIENT
  Sex: Female
  Weight: 23.587 kg

DRUGS (3)
  1. KUVAN [Suspect]
     Indication: PHENYLKETONURIA
     Dosage: (500 MG QD ORAL), (500 MG QD ORAL)
     Route: 048
     Dates: end: 20100501
  2. KUVAN [Suspect]
     Indication: PHENYLKETONURIA
     Dosage: (500 MG QD ORAL), (500 MG QD ORAL)
     Route: 048
     Dates: start: 20100512
  3. NUTRIENTS WITHOUT PHENYLALANINE [Concomitant]

REACTIONS (1)
  - ABDOMINAL PAIN UPPER [None]
